FAERS Safety Report 5511082-8 (Version None)
Quarter: 2007Q4

REPORT INFORMATION
  Report Type: 
  Country: None (occurrence: None)
  Receive Date: 20071109
  Receipt Date: 20071101
  Transmission Date: 20080405
  Serious: Yes (Hospitalization, Disabling, Other)
  Sender: FDA-Public Use
  Company Number: BR-ASTRAZENECA-2007UW25391

PATIENT
  Age: 66 Year
  Sex: Female
  Weight: 75 kg

DRUGS (3)
  1. CRESTOR [Suspect]
     Indication: HYPERCHOLESTEROLAEMIA
     Route: 048
     Dates: start: 20070501
  2. ZETIA [Concomitant]
     Indication: HYPERCHOLESTEROLAEMIA
     Route: 048
     Dates: start: 20070501
  3. EUTHYROX [Concomitant]
     Route: 048

REACTIONS (3)
  - ARTHRALGIA [None]
  - HAND FRACTURE [None]
  - MYALGIA [None]
